FAERS Safety Report 10291230 (Version 1)
Quarter: 2014Q3

REPORT INFORMATION
  Report Type: Spontaneous
  Country: DE (occurrence: DE)
  Receive Date: 20140710
  Receipt Date: 20140710
  Transmission Date: 20150326
  Serious: Yes (Other)
  Sender: FDA-Public Use
  Company Number: DE-TEVA-492349GER

PATIENT
  Sex: Male

DRUGS (1)
  1. CITALOPRAM-RATIOPHARM 30 MG FILMTABLETTEN [Suspect]
     Active Substance: CITALOPRAM HYDROBROMIDE
     Route: 048
     Dates: end: 201309

REACTIONS (7)
  - Muscle atrophy [Unknown]
  - Amyotrophic lateral sclerosis [Unknown]
  - Neoplasm [Unknown]
  - Weight decreased [Unknown]
  - Respiration abnormal [Unknown]
  - Posture abnormal [Unknown]
  - Muscle twitching [Unknown]

NARRATIVE: CASE EVENT DATE: 2013
